FAERS Safety Report 10901164 (Version 1)
Quarter: 2015Q1

REPORT INFORMATION
  Report Type: Spontaneous
  Country: US (occurrence: US)
  Receive Date: 20150310
  Receipt Date: 20150310
  Transmission Date: 20150721
  Serious: Yes (Life-Threatening)
  Sender: FDA-Public Use
  Company Number: PHEH2015US004292

PATIENT
  Age: 66 Year
  Sex: Female

DRUGS (4)
  1. RECLAST [Suspect]
     Active Substance: ZOLEDRONIC ACID
     Dosage: UNK
     Route: 042
  2. RECLAST [Suspect]
     Active Substance: ZOLEDRONIC ACID
     Dosage: UNK
     Route: 042
     Dates: start: 201411
  3. FEMARA [Concomitant]
     Active Substance: LETROZOLE
     Indication: PRODUCT USED FOR UNKNOWN INDICATION
     Route: 065
  4. RECLAST [Suspect]
     Active Substance: ZOLEDRONIC ACID
     Indication: PRODUCT USED FOR UNKNOWN INDICATION
     Dosage: UNK
     Route: 042

REACTIONS (21)
  - Feeling abnormal [Unknown]
  - Back disorder [Unknown]
  - Mental impairment [Unknown]
  - Gait disturbance [Unknown]
  - Weight decreased [Unknown]
  - Influenza like illness [Unknown]
  - Malaise [Unknown]
  - Nausea [Unknown]
  - Flank pain [Unknown]
  - Diet refusal [Unknown]
  - Dizziness [Unknown]
  - Pain [Unknown]
  - Asthma [Unknown]
  - Movement disorder [Unknown]
  - Lung disorder [Unknown]
  - Muscle spasms [Unknown]
  - Vision blurred [Unknown]
  - Insomnia [Unknown]
  - Paraesthesia oral [Unknown]
  - Lethargy [Unknown]
  - Pyrexia [Unknown]
